FAERS Safety Report 19824546 (Version 1)
Quarter: 2021Q3

REPORT INFORMATION
  Report Type: Spontaneous
  Country: US (occurrence: US)
  Receive Date: 20210910
  Receipt Date: 20210910
  Transmission Date: 20211014
  Serious: No
  Sender: FDA-Public Use
  Company Number: None

PATIENT
  Age: 56 Year
  Sex: Female
  Weight: 57.15 kg

DRUGS (6)
  1. FLUOXETINE HCL 10MG CAPSULE [Suspect]
     Active Substance: FLUOXETINE HYDROCHLORIDE
     Indication: OBSESSIVE-COMPULSIVE DISORDER
     Route: 048
     Dates: start: 20150707
  2. PROMETHAZINE [Concomitant]
     Active Substance: PROMETHAZINE HYDROCHLORIDE
  3. STATIN [Concomitant]
     Active Substance: UNSPECIFIED INGREDIENT
  4. ALPRAZOLAM. [Concomitant]
     Active Substance: ALPRAZOLAM
  5. LEVOTHYROXINE. [Suspect]
     Active Substance: LEVOTHYROXINE
  6. METFORMIN [Concomitant]
     Active Substance: METFORMIN HYDROCHLORIDE

REACTIONS (7)
  - Hyperhidrosis [None]
  - Insomnia [None]
  - Fatigue [None]
  - Tremor [None]
  - Joint range of motion decreased [None]
  - Alopecia [None]
  - Choking [None]

NARRATIVE: CASE EVENT DATE: 201507
